FAERS Safety Report 6820980-4 (Version None)
Quarter: 2010Q3

REPORT INFORMATION
  Report Type: 
  Country: None (occurrence: None)
  Receive Date: 20100707
  Receipt Date: 20080925
  Transmission Date: 20110219
  Serious: No
  Sender: FDA-Public Use
  Company Number: US-PFIZER INC-2007000223

PATIENT
  Sex: Female
  Weight: 52.62 kg

DRUGS (4)
  1. ZOLOFT [Suspect]
     Indication: ANXIETY
     Route: 048
     Dates: start: 20061210
  2. ZOLOFT [Suspect]
     Indication: DEPRESSION
  3. ZOCOR [Concomitant]
     Dates: start: 20040101
  4. ANASTROZOLE [Concomitant]
     Dates: start: 20061026

REACTIONS (2)
  - FEELING JITTERY [None]
  - NERVOUSNESS [None]
